FAERS Safety Report 25347971 (Version 1)
Quarter: 2025Q2

REPORT INFORMATION
  Report Type: Spontaneous
  Country: US (occurrence: US)
  Receive Date: 20250522
  Receipt Date: 20250522
  Transmission Date: 20250717
  Serious: No
  Sender: MYLAN
  Company Number: US-MYLANLABS-2025M1017205

PATIENT
  Age: 80 Year
  Sex: Female

DRUGS (2)
  1. TYRVAYA [Suspect]
     Active Substance: VARENICLINE TARTRATE
     Indication: Dry eye
     Dosage: 0.03 MILLIGRAM, BID (TWICE A DAY)
  2. TYRVAYA [Suspect]
     Active Substance: VARENICLINE TARTRATE

REACTIONS (3)
  - Periorbital swelling [Unknown]
  - Sneezing [Unknown]
  - Intentional product misuse [Unknown]
